FAERS Safety Report 9730336 (Version 4)
Quarter: 2014Q2

REPORT INFORMATION
  Report Type: Report from Study
  Country: GB (occurrence: GB)
  Receive Date: 20131204
  Receipt Date: 20140527
  Transmission Date: 20141212
  Serious: Yes (Death, Life-Threatening, Hospitalization, Other)
  Sender: FDA-Public Use
  Company Number: GB-ROCHE-1311331

PATIENT
  Age: 91 Year
  Sex: Female

DRUGS (2)
  1. RANIBIZUMAB [Suspect]
     Indication: AGE-RELATED MACULAR DEGENERATION
     Route: 050
     Dates: start: 20101214
  2. RANIBIZUMAB [Suspect]
     Route: 050
     Dates: start: 20130719

REACTIONS (16)
  - Cardiac failure [Fatal]
  - Renal failure chronic [Fatal]
  - Lower respiratory tract infection [Not Recovered/Not Resolved]
  - Atrial fibrillation [Unknown]
  - Bundle branch block left [Unknown]
  - Acute myocardial infarction [Recovering/Resolving]
  - Cellulitis [Unknown]
  - Decubitus ulcer [Recovering/Resolving]
  - Diarrhoea [Unknown]
  - Fall [Unknown]
  - Unresponsive to stimuli [Unknown]
  - Pneumonia [Unknown]
  - Cardiac failure congestive [Unknown]
  - Ventricular tachycardia [Unknown]
  - Renal failure acute [Unknown]
  - Folate deficiency [Unknown]
